FAERS Safety Report 24262361 (Version 3)
Quarter: 2025Q2

REPORT INFORMATION
  Report Type: Report from Study
  Country: US (occurrence: US)
  Receive Date: 20240829
  Receipt Date: 20250531
  Transmission Date: 20250716
  Serious: Yes (Other)
  Sender: STEMLINE THERAPEUTICS
  Company Number: US-STEMLINE THERAPEUTICS B.V.-2024-STML-US004453

PATIENT

DRUGS (2)
  1. ORSERDU [Suspect]
     Active Substance: ELACESTRANT
     Indication: Breast cancer female
     Dosage: 258 MG, DAILY
     Route: 048
     Dates: start: 20240225
  2. ORSERDU [Suspect]
     Active Substance: ELACESTRANT
     Dosage: 345 MG, DAILY
     Route: 048
     Dates: start: 20240803

REACTIONS (11)
  - Herpes zoster [Unknown]
  - Blood cholesterol increased [Unknown]
  - Red blood cell count decreased [Unknown]
  - Vitamin D decreased [Unknown]
  - Abdominal discomfort [Unknown]
  - Pain [Unknown]
  - Toothache [Unknown]
  - Bruxism [Unknown]
  - Nausea [Unknown]
  - Decreased appetite [Unknown]
  - Drug hypersensitivity [Unknown]
